FAERS Safety Report 21060585 (Version 1)
Quarter: 2022Q3

REPORT INFORMATION
  Report Type: Spontaneous
  Country: US (occurrence: US)
  Receive Date: 20220708
  Receipt Date: 20220708
  Transmission Date: 20221027
  Serious: No
  Sender: FDA-Public Use
  Company Number: US-TEVA-2022-US-2045965

PATIENT
  Age: 38 Year
  Sex: Female

DRUGS (1)
  1. MICROGESTIN [Suspect]
     Active Substance: ETHINYL ESTRADIOL\NORETHINDRONE ACETATE
     Indication: Product used for unknown indication
     Dosage: STRENGTH: 1.5-30 MG-MCG
     Dates: start: 2004

REACTIONS (3)
  - Muscle spasms [Unknown]
  - Product physical issue [Unknown]
  - Adverse drug reaction [Unknown]

NARRATIVE: CASE EVENT DATE: 20220101
